FAERS Safety Report 17638160 (Version 1)
Quarter: 2020Q2

REPORT INFORMATION
  Report Type: Not Available
  Country: US (occurrence: US)
  Receive Date: 20200407
  Receipt Date: 20200407
  Transmission Date: 20200713
  Serious: Yes (Life-Threatening, Hospitalization)
  Sender: FDA-Public Use
  Company Number: US-C B FLEET CO INC-202004-US-001370

PATIENT
  Sex: Male

DRUGS (1)
  1. GOODYS EXTRA STRENGTH [Suspect]
     Active Substance: ACETAMINOPHEN\ASPIRIN\CAFFEINE
     Indication: HEADACHE
     Dosage: 4-6 A DAY
     Route: 048

REACTIONS (5)
  - Dependence [Recovered/Resolved]
  - Gastric ulcer haemorrhage [Recovering/Resolving]
  - Overdose [None]
  - Inappropriate schedule of product administration [None]
  - Incorrect product administration duration [None]
